FAERS Safety Report 6296577-4 (Version None)
Quarter: 2009Q3

REPORT INFORMATION
  Report Type: 
  Country: None (occurrence: None)
  Receive Date: 20090804
  Receipt Date: 20090727
  Transmission Date: 20100115
  Serious: Yes (Hospitalization, Other)
  Sender: FDA-Public Use
  Company Number: NSADSS2001027209

PATIENT
  Age: 81 Year
  Sex: Female

DRUGS (5)
  1. INFLIXIMAB [Suspect]
     Indication: RHEUMATOID ARTHRITIS
     Route: 042
  2. METHOTREXATE [Concomitant]
  3. CORTICOSTEROID [Concomitant]
  4. ACFOL [Concomitant]
  5. CALCIUM/VITAMIN D [Concomitant]

REACTIONS (1)
  - PULMONARY TUBERCULOSIS [None]
